FAERS Safety Report 6660438-9 (Version None)
Quarter: 2010Q1

REPORT INFORMATION
  Report Type: 
  Country: None (occurrence: None)
  Receive Date: 20100331
  Receipt Date: 20100322
  Transmission Date: 20100710
  Serious: Yes (Hospitalization, Other)
  Sender: FDA-Public Use
  Company Number: US-ELI_LILLY_AND_COMPANY-US201003005951

PATIENT
  Sex: Female
  Weight: 72.562 kg

DRUGS (10)
  1. BYETTA [Suspect]
     Indication: TYPE 2 DIABETES MELLITUS
     Dosage: 5 UG, 2/D
     Route: 058
     Dates: start: 20050101, end: 20050101
  2. BYETTA [Suspect]
     Dosage: 10 UG, 2/D
     Route: 058
     Dates: start: 20050101, end: 20100101
  3. BYETTA [Suspect]
     Dosage: 10 U, 2/D
     Route: 058
     Dates: start: 20100301
  4. GLUCOTROL XL [Concomitant]
     Indication: TYPE 2 DIABETES MELLITUS
     Route: 048
  5. LANTUS [Concomitant]
     Indication: TYPE 2 DIABETES MELLITUS
     Dosage: 34 U, UNK
     Route: 058
  6. APIDRA [Concomitant]
     Indication: TYPE 2 DIABETES MELLITUS
  7. COZAAR [Concomitant]
     Route: 048
  8. TOPROL-XL [Concomitant]
     Route: 048
  9. SYNTHROID [Concomitant]
     Route: 048
  10. LIPITOR [Concomitant]
     Route: 048

REACTIONS (5)
  - DIABETIC KETOACIDOSIS [None]
  - NEUROPATHY PERIPHERAL [None]
  - OFF LABEL USE [None]
  - VISUAL ACUITY REDUCED [None]
  - WEIGHT DECREASED [None]
